FAERS Safety Report 11221148 (Version 4)
Quarter: 2015Q3

REPORT INFORMATION
  Report Type: Spontaneous
  Country: VN (occurrence: VN)
  Receive Date: 20150626
  Receipt Date: 20150925
  Transmission Date: 20151125
  Serious: Yes (Other)
  Sender: FDA-Public Use
  Company Number: VN-ROCHE-1596942

PATIENT
  Age: 30 Year
  Sex: Female
  Weight: 47 kg

DRUGS (13)
  1. MIRCERA [Suspect]
     Active Substance: METHOXY POLYETHYLENE GLYCOL-EPOETIN BETA
     Route: 058
     Dates: start: 20150617
  2. MIRCERA [Suspect]
     Active Substance: METHOXY POLYETHYLENE GLYCOL-EPOETIN BETA
     Route: 058
     Dates: start: 20150702
  3. MIRCERA [Suspect]
     Active Substance: METHOXY POLYETHYLENE GLYCOL-EPOETIN BETA
     Indication: NEPHROGENIC ANAEMIA
     Route: 058
     Dates: start: 20150608
  4. MIRCERA [Suspect]
     Active Substance: METHOXY POLYETHYLENE GLYCOL-EPOETIN BETA
     Route: 058
     Dates: start: 20150703
  5. EPOETIN BETA [Suspect]
     Active Substance: ERYTHROPOIETIN
     Route: 058
     Dates: start: 20150701
  6. EPOETIN BETA [Suspect]
     Active Substance: ERYTHROPOIETIN
     Route: 058
     Dates: start: 20150703
  7. FOLIC ACID. [Concomitant]
     Active Substance: FOLIC ACID
     Route: 048
  8. ADALAT CC [Concomitant]
     Active Substance: NIFEDIPINE
     Indication: HYPERTENSION
     Route: 048
  9. EPOETIN BETA [Suspect]
     Active Substance: ERYTHROPOIETIN
     Route: 058
     Dates: start: 20150629
  10. EPREX [Suspect]
     Active Substance: ERYTHROPOIETIN
     Indication: ANAEMIA
     Dosage: 3-5 DOSES
     Route: 065
  11. DOPEGYT [Concomitant]
     Active Substance: METHYLDOPA
     Indication: HYPERTENSION
     Route: 048
  12. VENOFER [Concomitant]
     Active Substance: IRON SUCROSE
     Route: 041
  13. EPOETIN BETA [Suspect]
     Active Substance: ERYTHROPOIETIN
     Indication: ANAEMIA
     Route: 058
     Dates: start: 20150627

REACTIONS (4)
  - Maternal exposure during pregnancy [Unknown]
  - Vaginal haemorrhage [Recovered/Resolved]
  - Premature delivery [Unknown]
  - Haemoglobin decreased [Recovered/Resolved]

NARRATIVE: CASE EVENT DATE: 20150612
